FAERS Safety Report 11284707 (Version 2)
Quarter: 2016Q1

REPORT INFORMATION
  Report Type: Spontaneous
  Country: US (occurrence: US)
  Receive Date: 20150720
  Receipt Date: 20160215
  Transmission Date: 20160525
  Serious: No
  Sender: FDA-Public Use
  Company Number: US-TAKEDA-2015TUS006527

PATIENT
  Age: 28 Year
  Sex: Female
  Weight: 57.14 kg

DRUGS (2)
  1. PRENATAL VITAMINS                  /01549301/ [Concomitant]
     Active Substance: VITAMINS
     Indication: SUPPLEMENTATION THERAPY
     Dosage: UNK
     Route: 048
  2. ENTYVIO [Suspect]
     Active Substance: VEDOLIZUMAB
     Indication: COLITIS ULCERATIVE
     Dosage: 300 MG, UNK
     Route: 042
     Dates: start: 20140922

REACTIONS (2)
  - No adverse event [Unknown]
  - Pregnancy [Unknown]

NARRATIVE: CASE EVENT DATE: 201501
